FAERS Safety Report 19826494 (Version 1)
Quarter: 2021Q3

REPORT INFORMATION
  Report Type: Spontaneous
  Country: US (occurrence: US)
  Receive Date: 20210911
  Receipt Date: 20210911
  Transmission Date: 20211014
  Serious: Yes (Hospitalization)
  Sender: FDA-Public Use
  Company Number: None

PATIENT
  Age: 75 Year
  Sex: Male
  Weight: 98 kg

DRUGS (3)
  1. LEUCOVORIN CALCIUM 880MG [Suspect]
     Active Substance: LEUCOVORIN CALCIUM
     Dates: end: 20210816
  2. 5?FLUOROURACIL (5?FU) 5280MG [Suspect]
     Active Substance: FLUOROURACIL
     Dates: end: 20210818
  3. ONIVYDE [Suspect]
     Active Substance: IRINOTECAN HYDROCHLORIDE
     Dates: end: 20210816

REACTIONS (13)
  - Sepsis [None]
  - Alanine aminotransferase increased [None]
  - Blood lactic acid [None]
  - Procalcitonin abnormal [None]
  - Escherichia bacteraemia [None]
  - Blood alkaline phosphatase increased [None]
  - Aspartate aminotransferase increased [None]
  - Haemoglobin decreased [None]
  - White blood cell count abnormal [None]
  - Bacteraemia [None]
  - Abdominal pain [None]
  - Lipase abnormal [None]
  - Glomerular filtration rate decreased [None]

NARRATIVE: CASE EVENT DATE: 20210908
